FAERS Safety Report 6516471-0 (Version None)
Quarter: 2009Q4

REPORT INFORMATION
  Report Type: 
  Country: None (occurrence: None)
  Receive Date: 20091223
  Receipt Date: 20091216
  Transmission Date: 20100525
  Serious: Yes (Hospitalization)
  Sender: FDA-Public Use
  Company Number: US-JNJFOC-20091205059

PATIENT
  Sex: Male
  Weight: 74.39 kg

DRUGS (7)
  1. REMICADE [Suspect]
     Route: 042
  2. REMICADE [Suspect]
     Route: 042
  3. REMICADE [Suspect]
     Route: 042
  4. REMICADE [Suspect]
     Indication: CROHN'S DISEASE
     Route: 042
  5. ENTOCORT EC [Concomitant]
     Indication: CROHN'S DISEASE
  6. PENTASA [Concomitant]
     Indication: CROHN'S DISEASE
  7. IMURAN [Concomitant]

REACTIONS (2)
  - CHILLS [None]
  - HOSPITALISATION [None]
